FAERS Safety Report 12183605 (Version 1)
Quarter: 2016Q1

REPORT INFORMATION
  Report Type: Spontaneous
  Country: US (occurrence: US)
  Receive Date: 20160316
  Receipt Date: 20160316
  Transmission Date: 20160526
  Serious: No
  Sender: FDA-Public Use
  Company Number: US-PFIZER INC-2016015472

PATIENT
  Sex: Female

DRUGS (1)
  1. ALAVERT ALLERGY [Suspect]
     Active Substance: LORATADINE
     Dosage: 2 DF, 1X/DAY

REACTIONS (3)
  - Rhinorrhoea [Unknown]
  - Intentional product misuse [Unknown]
  - Oropharyngeal pain [Unknown]
